FAERS Safety Report 19392940 (Version 1)
Quarter: 2021Q2

REPORT INFORMATION
  Report Type: Spontaneous
  Country: DE (occurrence: DE)
  Receive Date: 20210609
  Receipt Date: 20210609
  Transmission Date: 20210717
  Serious: Yes (Death, Other)
  Sender: FDA-Public Use
  Company Number: DE-AUROBINDO-AUR-APL-2021-023665

PATIENT

DRUGS (8)
  1. CYCLOPHOSPHAMIDE. [Suspect]
     Active Substance: CYCLOPHOSPHAMIDE
     Indication: BONE MARROW CONDITIONING REGIMEN
     Dosage: 400 MG/M2, ONCE A DAY (DAILY DOSE: 400 MG/M2 MILLIGRAM(S)/SQ. METER EVERY DAYS)
     Route: 065
  2. DAUNOXOME [Suspect]
     Active Substance: DAUNORUBICIN CITRATE
     Indication: CHEMOTHERAPY
     Dosage: UNK
     Route: 065
  3. LEMTRADA [Suspect]
     Active Substance: ALEMTUZUMAB
     Indication: BONE MARROW CONDITIONING REGIMEN
     Dosage: 0.2 MILLIGRAM/KILOGRAM, 1 WEEK (DAILY DOSE: 0.2 MG/KG MILLIGRAM(S)/KILOGRAM EVERY WEEKS)
     Route: 065
  4. MELPHALAN. [Suspect]
     Active Substance: MELPHALAN
     Indication: BONE MARROW CONDITIONING REGIMEN
     Dosage: 70 MG/M2, ONCE A DAY, (DAILY DOSE: 70 MG/M2 MILLIGRAM(S)/SQ. METER EVERY DAYS)
     Route: 065
  5. CLOFARABINE. [Suspect]
     Active Substance: CLOFARABINE
     Indication: BONE MARROW CONDITIONING REGIMEN
     Dosage: 40 MG/M2, ONCE A DAY (DAILY DOSE: 40 MG/M2 MILLIGRAM(S)/SQ. METER EVERY DAYS)
     Route: 065
  6. THIOTEPA. [Suspect]
     Active Substance: THIOTEPA
     Indication: BONE MARROW CONDITIONING REGIMEN
     Dosage: 20 MILLIGRAM/KILOGRAM, 1 WEEK (DAILY DOSE: 20 MG/KG MILLIGRAM(S)/KILOGRAM EVERY WEEKS)
     Route: 065
  7. FLUDARABINE PHOSPHATE. [Suspect]
     Active Substance: FLUDARABINE PHOSPHATE
     Indication: BONE MARROW CONDITIONING REGIMEN
     Dosage: 40 MG/M2, ONCE A DAY (DAILY DOSE: 40 MG/M2 MILLIGRAM(S)/SQ. METER EVERY DAYS)
     Route: 065
  8. ETOPOSIDE. [Suspect]
     Active Substance: ETOPOSIDE
     Indication: BONE MARROW CONDITIONING REGIMEN
     Dosage: 100 MG/M2, ONCE A DAY (DAILY DOSE: 100 MG/M2 MILLIGRAM(S)/SQ. METER EVERY DAYS)
     Route: 065

REACTIONS (1)
  - Multiple organ dysfunction syndrome [Fatal]
